FAERS Safety Report 14266284 (Version 2)
Quarter: 2017Q4

REPORT INFORMATION
  Report Type: Spontaneous
  Country: US (occurrence: US)
  Receive Date: 20171210
  Receipt Date: 20171228
  Transmission Date: 20180321
  Serious: No
  Sender: FDA-Public Use
  Company Number: US-AMGEN-USASP2017181418

PATIENT
  Age: 35 Year
  Sex: Male

DRUGS (1)
  1. ENBREL [Suspect]
     Active Substance: ETANERCEPT
     Indication: RHEUMATOID ARTHRITIS
     Dosage: 50 MG, QWK
     Route: 058
     Dates: start: 20171103

REACTIONS (5)
  - Feeling hot [Unknown]
  - Pain in extremity [Unknown]
  - Swelling [Unknown]
  - Adverse reaction [Unknown]
  - Erythema [Unknown]

NARRATIVE: CASE EVENT DATE: 2017
